FAERS Safety Report 20657910 (Version 1)
Quarter: 2022Q1

REPORT INFORMATION
  Report Type: Spontaneous
  Country: GB (occurrence: GB)
  Receive Date: 20220331
  Receipt Date: 20220331
  Transmission Date: 20220424
  Serious: Yes (Other)
  Sender: FDA-Public Use
  Company Number: None

PATIENT
  Sex: Male

DRUGS (6)
  1. MONTELUKAST [Suspect]
     Active Substance: MONTELUKAST SODIUM
     Indication: Asthma
     Dates: start: 20220118
  2. CHLORAMPHENICOL [Concomitant]
     Active Substance: CHLORAMPHENICOL
  3. BECLOMETHASONE DIPROPIONATE [Concomitant]
     Active Substance: BECLOMETHASONE DIPROPIONATE
     Indication: Asthma
  4. AMOXICILLIN [Concomitant]
     Active Substance: AMOXICILLIN
  5. PREDNISOLONE [Concomitant]
     Active Substance: PREDNISOLONE
  6. ALBUTEROL [Concomitant]
     Active Substance: ALBUTEROL
     Indication: Asthma

REACTIONS (3)
  - Anger [Unknown]
  - Obsessive-compulsive disorder [Not Recovered/Not Resolved]
  - Anxiety [Not Recovered/Not Resolved]

NARRATIVE: CASE EVENT DATE: 20220316
